FAERS Safety Report 14052310 (Version 1)
Quarter: 2017Q4

REPORT INFORMATION
  Report Type: Spontaneous
  Country: GB (occurrence: GB)
  Receive Date: 20171006
  Receipt Date: 20171006
  Transmission Date: 20180321
  Serious: Yes (Other)
  Sender: FDA-Public Use
  Company Number: PHFR2017GB008023

PATIENT
  Age: 31 Year
  Sex: Female
  Weight: 55 kg

DRUGS (1)
  1. AMOXICILLIN. [Suspect]
     Active Substance: AMOXICILLIN
     Indication: LARYNGITIS
     Dosage: 500 MG, TID FOR 7 DAYS
     Route: 048
     Dates: start: 20170913, end: 20170917

REACTIONS (5)
  - Cystitis [Not Recovered/Not Resolved]
  - Dysuria [Unknown]
  - Urine abnormality [Unknown]
  - Chromaturia [Unknown]
  - Pollakiuria [Unknown]

NARRATIVE: CASE EVENT DATE: 20170917
